FAERS Safety Report 10101270 (Version 1)
Quarter: 2014Q2

REPORT INFORMATION
  Report Type: Spontaneous
  Country: US (occurrence: US)
  Receive Date: 20140424
  Receipt Date: 20140424
  Transmission Date: 20141212
  Serious: No
  Sender: FDA-Public Use
  Company Number: US-PFIZER INC-2014110346

PATIENT
  Age: 61 Year
  Sex: Female
  Weight: 61.68 kg

DRUGS (1)
  1. LYRICA [Suspect]
     Indication: NEURALGIA
     Dosage: 50 MG, 2X/DAY
     Route: 048
     Dates: start: 201403, end: 20140401

REACTIONS (3)
  - Malaise [Unknown]
  - Nausea [Unknown]
  - Reaction to drug excipients [Unknown]
